FAERS Safety Report 8428781-0 (Version None)
Quarter: 2012Q2

REPORT INFORMATION
  Report Type: 
  Country: None (occurrence: None)
  Receive Date: 20120612
  Receipt Date: 20120604
  Transmission Date: 20120825
  Serious: Yes (Hospitalization, Other)
  Sender: FDA-Public Use
  Company Number: US-BAYER-2012-040471

PATIENT
  Age: 47 Year
  Sex: Female

DRUGS (6)
  1. YASMIN [Suspect]
     Dosage: UNK
  2. ALBUTEROL [Concomitant]
     Dosage: UNK UNK, PRN
  3. ASPIRIN [Concomitant]
     Dosage: 81 MG, UNK
  4. SINGULAIR [Concomitant]
     Dosage: 10 MG, UNK
  5. HMG COA REDUCTASE INHIBITORS [Concomitant]
  6. YAZ [Suspect]
     Indication: ENDOMETRIOSIS
     Dosage: UNK

REACTIONS (5)
  - EMOTIONAL DISTRESS [None]
  - THROMBOSIS [None]
  - PULMONARY EMBOLISM [None]
  - INJURY [None]
  - PAIN [None]
